FAERS Safety Report 5262794-5 (Version None)
Quarter: 2007Q1

REPORT INFORMATION
  Report Type: 
  Country: None (occurrence: None)
  Receive Date: 20070312
  Receipt Date: 20070302
  Transmission Date: 20070707
  Serious: Yes (Other)
  Sender: FDA-Public Use
  Company Number: JP-JPN-A200700760

PATIENT
  Sex: Male

DRUGS (9)
  1. VALTREX [Suspect]
     Indication: HERPES ZOSTER
     Dosage: 1G THREE TIMES PER DAY
     Route: 048
     Dates: start: 20070127, end: 20070201
  2. LONGES [Concomitant]
     Route: 048
  3. PERDIPINE LA [Concomitant]
     Route: 048
  4. UNKNOWN NAME [Concomitant]
     Route: 048
  5. LENDORMIN [Concomitant]
     Route: 048
  6. SERMION [Concomitant]
     Route: 048
  7. GRANDAXIN [Concomitant]
     Route: 048
  8. MEILAX [Concomitant]
     Route: 048
  9. UNKNOWN NAME [Concomitant]
     Route: 048

REACTIONS (2)
  - HEPATIC FUNCTION ABNORMAL [None]
  - JAUNDICE [None]
